FAERS Safety Report 11741755 (Version 1)
Quarter: 2015Q4

REPORT INFORMATION
  Report Type: Spontaneous
  Country: IT (occurrence: IT)
  Receive Date: 20151116
  Receipt Date: 20151116
  Transmission Date: 20160304
  Serious: Yes (Hospitalization, Other)
  Sender: FDA-Public Use
  Company Number: IT-WATSON-2015-19277

PATIENT
  Age: 90 Year
  Sex: Female

DRUGS (2)
  1. PROMAZINE [Suspect]
     Active Substance: PROMAZINE
     Indication: DEMENTIA
     Dosage: 10 MG, DAILY
     Route: 065
  2. PROPAFENONE (WATSON LABORATORIES) [Suspect]
     Active Substance: PROPAFENONE
     Indication: ATRIAL FIBRILLATION
     Dosage: 325 MG, BID
     Route: 065

REACTIONS (3)
  - Left ventricular dysfunction [Unknown]
  - Electrocardiogram QRS complex prolonged [Recovering/Resolving]
  - Drug interaction [Recovered/Resolved]
